FAERS Safety Report 9655279 (Version 2)
Quarter: 2013Q4

REPORT INFORMATION
  Report Type: Spontaneous
  Country: US (occurrence: US)
  Receive Date: 20131029
  Receipt Date: 20131029
  Transmission Date: 20140711
  Serious: No
  Sender: FDA-Public Use
  Company Number: US-PURDUE-USA-2012-0087748

PATIENT
  Age: 58 Year
  Sex: Male
  Weight: 58.96 kg

DRUGS (5)
  1. OXYCONTIN (NDA 22-272) [Suspect]
     Indication: PAIN
     Dosage: 40 MG, BID
     Route: 048
  2. OXYCONTIN (NDA 22-272) [Suspect]
     Dosage: 20 MG, UNK
  3. OXYCONTIN (NDA 22-272) [Suspect]
     Dosage: 10 MG, UNK
  4. OXYCONTIN (NDA 22-272) [Suspect]
     Dosage: 5 MG, UNK
  5. OXYCODONE HCL IR CAPSULES [Concomitant]
     Indication: PRODUCT USED FOR UNKNOWN INDICATION
     Dosage: 5 MG, BID

REACTIONS (9)
  - Pain [Not Recovered/Not Resolved]
  - Inadequate analgesia [Not Recovered/Not Resolved]
  - Weight decreased [Unknown]
  - Therapeutic response delayed [Unknown]
  - Fatigue [Unknown]
  - Drug effect decreased [Unknown]
  - Decreased activity [Unknown]
  - Dysgeusia [Unknown]
  - Product quality issue [Unknown]
